FAERS Safety Report 11814684 (Version 2)
Quarter: 2015Q4

REPORT INFORMATION
  Report Type: Other
  Country: IL (occurrence: IL)
  Receive Date: 20151209
  Receipt Date: 20151210
  Transmission Date: 20160305
  Serious: Yes (Other)
  Sender: FDA-Public Use
  Company Number: IL-COR_00321_2015

PATIENT
  Age: 58 Year
  Sex: Male

DRUGS (18)
  1. DEXAMETHASONE. [Suspect]
     Active Substance: DEXAMETHASONE
     Indication: PLASMA CELL MYELOMA
     Dosage: 2 COURSES
  2. DEXAMETHASONE. [Suspect]
     Active Substance: DEXAMETHASONE
     Dosage: 6 COURSES
  3. DEXAMETHASONE. [Suspect]
     Active Substance: DEXAMETHASONE
     Dosage: 4 COURSES
  4. LENALIDOMIDE [Suspect]
     Active Substance: LENALIDOMIDE
     Indication: PLASMA CELL MYELOMA
     Dosage: 4 COURSES
  5. THALIDOMIDE [Suspect]
     Active Substance: THALIDOMIDE
     Indication: PLASMA CELL MYELOMA
     Dosage: 2 COURSES
  6. THALIDOMIDE [Suspect]
     Active Substance: THALIDOMIDE
     Dosage: 6 COURSES
  7. ADRIAMYCIN [Suspect]
     Active Substance: DOXORUBICIN HYDROCHLORIDE
     Indication: PLASMA CELL MYELOMA
     Dosage: 2 COURSES
  8. ETOPOSIDE. [Suspect]
     Active Substance: ETOPOSIDE
     Indication: PLASMA CELL MYELOMA
     Dosage: 2 COURSES
  9. CISPLATIN. [Suspect]
     Active Substance: CISPLATIN
     Indication: PLASMA CELL MYELOMA
     Dosage: 2 COURSES
  10. BORTEZOMIB [Suspect]
     Active Substance: BORTEZOMIB
     Dosage: 6 COURSES
  11. DEXAMETHASONE. [Suspect]
     Active Substance: DEXAMETHASONE
     Dosage: WEEKLY
  12. DEXAMETHASONE. [Suspect]
     Active Substance: DEXAMETHASONE
     Dosage: DF
  13. CYCLOPHOSPHAMIDE. [Suspect]
     Active Substance: CYCLOPHOSPHAMIDE
     Indication: PLASMA CELL MYELOMA
     Dosage: 2 COURSES
  14. BORTEZOMIB [Suspect]
     Active Substance: BORTEZOMIB
     Dosage: DF
  15. RADIOTHERAPY [Suspect]
     Active Substance: RADIATION THERAPY
     Dosage: DF
  16. RADIOTHERAPY [Suspect]
     Active Substance: RADIATION THERAPY
     Indication: PLASMA CELL MYELOMA
     Dosage: DF
  17. BENDAMUSTINE [Suspect]
     Active Substance: BENDAMUSTINE
     Indication: PLASMA CELL MYELOMA
     Dosage: 4 COURSES
  18. BORTEZOMIB [Suspect]
     Active Substance: BORTEZOMIB
     Indication: PLASMA CELL MYELOMA
     Dosage: 2 COURSES

REACTIONS (2)
  - Plasmacytoma [Unknown]
  - Nocardiosis [Unknown]
